FAERS Safety Report 23588676 (Version 1)
Quarter: 2024Q1

REPORT INFORMATION
  Report Type: Spontaneous
  Country: HR (occurrence: HR)
  Receive Date: 20240302
  Receipt Date: 20240302
  Transmission Date: 20240409
  Serious: Yes (Other)
  Sender: FDA-Public Use
  Company Number: HR-EMA-2024222-AUTODUP-1708559933416

PATIENT
  Sex: Female

DRUGS (12)
  1. CYCLOPHOSPHAMIDE [Suspect]
     Active Substance: CYCLOPHOSPHAMIDE
     Indication: Lymphadenopathy
     Dosage: UNK, START DATE- SEP 2023
     Route: 065
  2. CYCLOPHOSPHAMIDE [Suspect]
     Active Substance: CYCLOPHOSPHAMIDE
     Dosage: UNK, CONTINUED TREATMENT WITH R-DAEPOCH DO 6 CY, START DATE- JAN 2024
     Route: 065
  3. DOXORUBICIN [Suspect]
     Active Substance: DOXORUBICIN
     Indication: Lymphadenopathy
     Dosage: UNK, CONTINUED TREATMENT WITH R-DAEPOCH DO 6 CY, START DATE- JAN 2024
     Route: 065
  4. DOXORUBICIN [Suspect]
     Active Substance: DOXORUBICIN
     Dosage: UNK, START DATE- SEP 2023
     Route: 065
  5. ETOPOSIDE [Suspect]
     Active Substance: ETOPOSIDE
     Indication: Lymphadenopathy
     Dosage: UNK, CONTINUED TREATMENT WITH R-DAEPOCH DO 6 CY, START DATE- JAN 2024
     Route: 065
  6. ETOPOSIDE [Suspect]
     Active Substance: ETOPOSIDE
     Dosage: UNK, START DATE- SEP 2023
     Route: 065
  7. PREDNISOLONE [Suspect]
     Active Substance: PREDNISOLONE
     Indication: Lymphadenopathy
     Dosage: UNK, CONTINUED TREATMENT WITH R-DAEPOCH DO 6 CY, START DATE- JAN 2024
     Route: 065
  8. PREDNISOLONE [Suspect]
     Active Substance: PREDNISOLONE
     Dosage: UNK, START DATE- SEP 2023
     Route: 065
  9. RITUXIMAB [Suspect]
     Active Substance: RITUXIMAB
     Indication: Lymphadenopathy
     Dosage: UNK, CONTINUED TREATMENT WITH R-DAEPOCH DO 6 CY, START DATE- JAN 2024
     Route: 065
  10. RITUXIMAB [Suspect]
     Active Substance: RITUXIMAB
     Dosage: 1. CY 100+600MG IN SLOW INFUSION FROM 2. CY RIXATHON IN RAPID INFUSION OVER 90 MIN, START DATE- SEP
     Route: 065
  11. VINCRISTINE [Suspect]
     Active Substance: VINCRISTINE
     Indication: Lymphadenopathy
     Dosage: UNK, CONTINUED TREATMENT WITH R-DAEPOCH DO 6 CY, START DATE- JAN 2024
     Route: 065
  12. VINCRISTINE [Suspect]
     Active Substance: VINCRISTINE
     Dosage: UNK, START DATE- SEP 2023
     Route: 065

REACTIONS (1)
  - Febrile neutropenia [Unknown]
